FAERS Safety Report 8576284-5 (Version None)
Quarter: 2012Q3

REPORT INFORMATION
  Report Type: 
  Country: None (occurrence: None)
  Receive Date: 20120724
  Receipt Date: 20120710
  Transmission Date: 20120928
  Serious: Yes (Other)
  Sender: FDA-Public Use
  Company Number: DSJ-2011-26834

PATIENT
  Age: 57 Year
  Sex: Male

DRUGS (6)
  1. BENICAR HCT [Suspect]
     Indication: HYPERTENSION
     Dosage: 40/12.5 MG (1 IN 1 D), PER ORAL
     Route: 048
     Dates: start: 20110101, end: 20120201
  2. AMOXICILLIN [Suspect]
     Indication: DENTAL IMPLANTATION
     Dosage: 500 MG, PER ORAL
     Route: 048
     Dates: start: 20111101
  3. ANTI-INFLAMMATORY MEDICINE FOR SPINE DISORDER (NAME UNKNOWN) (ANTIINFL [Concomitant]
  4. CELECOXIB [Suspect]
     Indication: DENTAL IMPLANTATION
     Dosage: PER ORAL
     Route: 048
     Dates: start: 20111101
  5. AMLODIPINE [Concomitant]
  6. BETAMETHASONE [Suspect]
     Indication: DENTAL IMPLANTATION
     Dosage: 2 MG, PER ORAL
     Route: 048
     Dates: start: 20111101

REACTIONS (4)
  - BLOOD PRESSURE SYSTOLIC INCREASED [None]
  - ANAL FISSURE [None]
  - DRUG INEFFECTIVE [None]
  - DENTAL IMPLANTATION [None]
